FAERS Safety Report 8098711-2 (Version None)
Quarter: 2012Q1

REPORT INFORMATION
  Report Type: 
  Country: None (occurrence: None)
  Receive Date: 20120126
  Receipt Date: 20120116
  Transmission Date: 20120608
  Serious: Yes (Other)
  Sender: FDA-Public Use
  Company Number: 1000027158

PATIENT
  Age: 33 Year
  Sex: Female

DRUGS (7)
  1. TRAMADOL HCL [Concomitant]
  2. GABAPENTIN [Concomitant]
  3. VIIBRYD [Suspect]
     Indication: DEPRESSION
     Dosage: 10 MG (10 MG, 1 IN 1 D), ORAL
     Route: 048
     Dates: start: 20120112, end: 20120115
  4. PROAIR HFA [Concomitant]
  5. LEXAPRO [Concomitant]
  6. ACETAMINOPHEN [Concomitant]
  7. XANAX [Concomitant]

REACTIONS (3)
  - INSOMNIA [None]
  - MENTAL IMPAIRMENT [None]
  - CONVULSION [None]
